FAERS Safety Report 23123525 (Version 6)
Quarter: 2024Q1

REPORT INFORMATION
  Report Type: Report from Study
  Country: SA (occurrence: SA)
  Receive Date: 20231030
  Receipt Date: 20240322
  Transmission Date: 20240410
  Serious: Yes (Other)
  Sender: FDA-Public Use
  Company Number: SA-002147023-NVSC2023SA229824

PATIENT
  Age: 31 Year
  Sex: Male

DRUGS (4)
  1. KESIMPTA [Suspect]
     Active Substance: OFATUMUMAB
     Indication: Relapsing-remitting multiple sclerosis
     Dosage: 20 MG (STARTED ON MAR OR APR 2023)
     Route: 058
     Dates: start: 2023, end: 202310
  2. KESIMPTA [Suspect]
     Active Substance: OFATUMUMAB
     Dosage: UNK
     Route: 065
     Dates: start: 202312
  3. GLIPTAMET [Concomitant]
     Indication: Diabetes mellitus
     Dosage: 50/1000 MG, BID (50/1000 MG OF METFORMIN HYDROCHLORIDE AND 1000 MG OF SITAGLIPTIN PHOSPHATE)
     Route: 048
  4. ASPIRIN [Concomitant]
     Active Substance: ASPIRIN
     Indication: Anticoagulant therapy
     Dosage: 10 MG, QD
     Route: 048

REACTIONS (4)
  - Tuberculosis [Not Recovered/Not Resolved]
  - Multiple sclerosis [Not Recovered/Not Resolved]
  - Blood urine present [Recovered/Resolved]
  - Drug ineffective [Unknown]

NARRATIVE: CASE EVENT DATE: 20230901
